FAERS Safety Report 7913784 (Version 2)
Quarter: 2012Q4

REPORT INFORMATION
  Report Type: 
  Country: VE (occurrence: VE)
  Receive Date: 20110425
  Receipt Date: 20121127
  Transmission Date: 20130627
  Serious: Yes (Other)
  Sender: FDA-Public Use
  Company Number: PHHY2011VE14840

PATIENT
  Age: 59 Year
  Sex: Female

DRUGS (3)
  1. ACLASTA [Suspect]
     Indication: OSTEOPOROSIS
     Dosage: 5 mg, yearly
     Route: 042
     Dates: start: 20101004
  2. VITAMIN C [Concomitant]
     Dosage: UNK UKN, ONCE/SINGLE
  3. CITRACAL [Concomitant]
     Dosage: UNK UKN, ONCE/SINGLE

REACTIONS (5)
  - Dengue fever [Recovered/Resolved]
  - Syncope [Recovered/Resolved]
  - Pain [Recovered/Resolved]
  - Joint swelling [Recovered/Resolved]
  - Arthralgia [Recovered/Resolved]
